FAERS Safety Report 7280130-X (Version None)
Quarter: 2011Q1

REPORT INFORMATION
  Report Type: 
  Country: None (occurrence: None)
  Receive Date: 20110208
  Receipt Date: 20110127
  Transmission Date: 20110831
  Serious: Yes (Other)
  Sender: FDA-Public Use
  Company Number: US-JNJCH-2010013546

PATIENT
  Sex: Female

DRUGS (1)
  1. PURELL ORIGINAL [Suspect]
     Indication: PROPHYLAXIS
     Dosage: TEXT:^SEVERAL TIMES^ A DAY
     Route: 061

REACTIONS (2)
  - THERMAL BURN [None]
  - IMPAIRED WORK ABILITY [None]
